FAERS Safety Report 5610734-9 (Version None)
Quarter: 2008Q1

REPORT INFORMATION
  Report Type: 
  Country: None (occurrence: None)
  Receive Date: 20080201
  Receipt Date: 20080124
  Transmission Date: 20080703
  Serious: Yes (Hospitalization)
  Sender: FDA-Public Use
  Company Number: PHHO2006KR07996

PATIENT
  Age: 38 Year
  Sex: Male
  Weight: 66 kg

DRUGS (8)
  1. TAZOCIN [Suspect]
     Dosage: 4.5G
     Route: 042
     Dates: start: 20070916, end: 20071003
  2. AMN107 [Suspect]
     Indication: CHRONIC MYELOID LEUKAEMIA
     Dosage: 1200MG DAILY
     Route: 048
     Dates: start: 20060206, end: 20060510
  3. AMN107 [Suspect]
     Dosage: 800MG
     Route: 048
     Dates: start: 20060612, end: 20070915
  4. ANTIBIOTICS [Suspect]
  5. ZITHROMAX [Suspect]
     Dosage: 500MG
     Route: 042
     Dates: start: 20070916, end: 20070923
  6. BACTRIM [Suspect]
  7. TOBRAMYCIN [Suspect]
  8. FLUCONAZOLE [Concomitant]

REACTIONS (10)
  - BACTERIAL INFECTION [None]
  - COUGH [None]
  - HEPATOTOXICITY [None]
  - HYPERBILIRUBINAEMIA [None]
  - LIVER DISORDER [None]
  - LUNG INFILTRATION [None]
  - PAIN [None]
  - PNEUMONIA [None]
  - PRODUCTIVE COUGH [None]
  - PYREXIA [None]
